FAERS Safety Report 5689168-7 (Version None)
Quarter: 2008Q1

REPORT INFORMATION
  Report Type: 
  Country: None (occurrence: None)
  Receive Date: 20080331
  Receipt Date: 20080324
  Transmission Date: 20080703
  Serious: Yes (Hospitalization)
  Sender: FDA-Public Use
  Company Number: US-KINGPHARMUSA00001-K200800357

PATIENT

DRUGS (6)
  1. CORGARD [Suspect]
     Indication: VENTRICULAR ARRHYTHMIA
     Dosage: 80 MG, QD
     Route: 048
     Dates: start: 20080125, end: 20080209
  2. CORDARONE [Suspect]
     Indication: VENTRICULAR ARRHYTHMIA
     Dosage: 200 MG, QD
     Route: 048
     Dates: start: 20080207, end: 20080209
  3. CORDARONE [Suspect]
     Dates: start: 20080212
  4. TAHOR [Suspect]
     Dosage: 40 MG, QD
     Route: 048
     Dates: end: 20080209
  5. PREVISCAN /00789001/ [Suspect]
     Dosage: 20 MG, QD
     Route: 048
     Dates: end: 20080209
  6. CARDENSIEL [Concomitant]

REACTIONS (12)
  - ATRIAL FIBRILLATION [None]
  - BLOOD CREATININE INCREASED [None]
  - BRADYCARDIA [None]
  - CARDIOGENIC SHOCK [None]
  - EJECTION FRACTION DECREASED [None]
  - EPILEPSY [None]
  - GENERAL PHYSICAL HEALTH DETERIORATION [None]
  - HEPATIC FAILURE [None]
  - HYPERKALAEMIA [None]
  - INTERNATIONAL NORMALISED RATIO INCREASED [None]
  - RENAL FAILURE ACUTE [None]
  - SINOATRIAL BLOCK [None]
